FAERS Safety Report 4560983-6 (Version None)
Quarter: 2005Q1

REPORT INFORMATION
  Report Type: 
  Country: None (occurrence: None)
  Receive Date: 20050126
  Receipt Date: 20040503
  Transmission Date: 20050727
  Serious: Yes (Life-Threatening)
  Sender: FDA-Public Use
  Company Number: US-BRISTOL-MYERS SQUIBB COMPANY-12576856

PATIENT
  Age: 70 Year
  Sex: Male

DRUGS (2)
  1. METFORMIN HCL [Suspect]
     Indication: DIABETES MELLITUS
     Route: 048
  2. GLIMEPIRIDE [Suspect]
     Indication: DIABETES MELLITUS
     Dosage: NORMAL DOSE VALUE:  2 MILLIGRAMS TWICE DAILY WHICH REMAINED ONGOING
     Route: 048
     Dates: start: 20040330, end: 20040330

REACTIONS (1)
  - HYPOGLYCAEMIA [None]
